FAERS Safety Report 7813074-2 (Version None)
Quarter: 2011Q4

REPORT INFORMATION
  Report Type: 
  Country: None (occurrence: None)
  Receive Date: 20111013
  Receipt Date: 20111011
  Transmission Date: 20120403
  Serious: Yes (Life-Threatening, Hospitalization, Other)
  Sender: FDA-Public Use
  Company Number: PHHY2011FR33127

PATIENT
  Sex: Male
  Weight: 92 kg

DRUGS (14)
  1. EVEROLIMUS [Suspect]
     Indication: RENAL CANCER
     Dosage: 10 MG, DAILY
     Route: 048
     Dates: start: 20110419, end: 20110429
  2. CREON [Concomitant]
  3. FENOFIBRATE [Concomitant]
     Dosage: 145 MG, QD
  4. LEXOMIL [Concomitant]
     Dosage: 0.5 DF, QD
  5. LEVOTHYROXINE SODIUM [Concomitant]
     Dosage: 100 MG, QD
  6. HYDROCORTISONE [Concomitant]
     Dosage: 20 MG, DAILY
  7. ACTOS [Concomitant]
     Dosage: 30 MG, QD
  8. ARANESP [Concomitant]
  9. ESOMEPRAZOLE SODIUM [Concomitant]
     Dosage: 20 MG, QD
  10. LANTUS [Concomitant]
     Dosage: 22 IU, QID
     Dates: start: 20080101
  11. VALSARTAN [Concomitant]
     Dosage: 160 MG, QD
  12. XANAX [Concomitant]
     Dosage: 0.5 DF, BID
  13. FLUDROCORTISONE ACETATE [Concomitant]
     Dosage: 50 MG, QD
  14. REPAGLINIDE [Concomitant]
     Dosage: 4 MG, TID

REACTIONS (7)
  - ASTHENIA [None]
  - MUSCLE MASS [None]
  - SEPTIC SHOCK [None]
  - INFECTION [None]
  - GLOMERULAR FILTRATION RATE DECREASED [None]
  - BONE PAIN [None]
  - OEDEMA [None]
